FAERS Safety Report 7276583-3 (Version None)
Quarter: 2011Q1

REPORT INFORMATION
  Report Type: 
  Country: None (occurrence: None)
  Receive Date: 20110204
  Receipt Date: 20110130
  Transmission Date: 20110831
  Serious: Yes (Other)
  Sender: FDA-Public Use
  Company Number: US-PFIZER INC-2011021171

PATIENT
  Sex: Female
  Weight: 83.9 kg

DRUGS (2)
  1. ADVIL [Suspect]
     Indication: SINUSITIS
     Dosage: 60 MG, UNK
     Route: 048
     Dates: start: 20110129
  2. ADVIL [Suspect]
     Indication: NASOPHARYNGITIS

REACTIONS (3)
  - DIZZINESS [None]
  - PERIPHERAL VASCULAR DISORDER [None]
  - FEELING ABNORMAL [None]
